FAERS Safety Report 9400427 (Version 3)
Quarter: 2015Q2

REPORT INFORMATION
  Report Type: Report from Study
  Country: JP (occurrence: JP)
  Receive Date: 20130715
  Receipt Date: 20150612
  Transmission Date: 20150821
  Serious: Yes (Hospitalization)
  Sender: FDA-Public Use
  Company Number: JP-PFIZER INC-2011022544

PATIENT
  Age: 62 Year
  Sex: Male
  Weight: 62.3 kg

DRUGS (9)
  1. NIFEDIPINE. [Concomitant]
     Active Substance: NIFEDIPINE
     Indication: HYPERTENSION
     Dosage: 20 MG, 2X/DAY
     Route: 048
     Dates: start: 20070417, end: 20110331
  2. IMIDAPRIL HYDROCHLORIDE [Concomitant]
     Active Substance: IMIDAPRIL HYDROCHLORIDE
     Indication: HYPERTENSION
     Dosage: 5 MG, 1X/DAY
     Route: 048
     Dates: start: 20070417, end: 20110330
  3. ZINC OXIDE OINTMENT [Concomitant]
     Indication: SEBORRHOEIC DERMATITIS
     Dosage: UNK, 2X/DAY
     Route: 061
     Dates: start: 1998
  4. LEVOTHYROXINE SODIUM. [Concomitant]
     Active Substance: LEVOTHYROXINE SODIUM
     Indication: HYPOTHYROIDISM
     Dosage: 50 UG, 1X/DAY
     Route: 048
     Dates: start: 20020117, end: 20110331
  5. CARTEOLOL HYDROCHLORIDE. [Concomitant]
     Active Substance: CARTEOLOL HYDROCHLORIDE
     Indication: GLAUCOMA
     Dosage: UNK, AS NEEDED
     Route: 061
     Dates: start: 2002
  6. ALLOPURINOL. [Concomitant]
     Active Substance: ALLOPURINOL
     Indication: HYPERURICAEMIA
     Dosage: 100 MG, 1X/DAY
     Route: 048
     Dates: start: 19991213, end: 20110330
  7. BOSUTINIB [Suspect]
     Active Substance: BOSUTINIB
     Indication: CHRONIC MYELOID LEUKAEMIA
     Dosage: 300 MG, DAILY
     Route: 048
     Dates: start: 20090825, end: 20110126
  8. WHITE PETROLATUM [Concomitant]
     Active Substance: PETROLATUM
     Indication: SEBORRHOEIC DERMATITIS
     Dosage: UNK, 2X/DAY
     Route: 061
     Dates: start: 1998
  9. OXYBUPROCAINE HYDROCHLORIDE [Concomitant]
     Indication: GLAUCOMA
     Dosage: UNK, AS NEEDED
     Route: 061
     Dates: start: 2002

REACTIONS (2)
  - Second primary malignancy [Not Recovered/Not Resolved]
  - Bladder cancer [Not Recovered/Not Resolved]

NARRATIVE: CASE EVENT DATE: 20110112
